FAERS Safety Report 8078813-7 (Version None)
Quarter: 2012Q1

REPORT INFORMATION
  Report Type: 
  Country: None (occurrence: None)
  Receive Date: 20120124
  Receipt Date: 20120111
  Transmission Date: 20120608
  Serious: Yes (Other)
  Sender: FDA-Public Use
  Company Number: 2012SP003110

PATIENT
  Age: 57 Year
  Sex: Male

DRUGS (2)
  1. VICTRELIS [Suspect]
     Indication: PRODUCT USED FOR UNKNOWN INDICATION
     Dosage: 800 MG;PO
     Route: 048
  2. WELLBUTRIN [Concomitant]

REACTIONS (2)
  - FEELING ABNORMAL [None]
  - PANIC ATTACK [None]
